FAERS Safety Report 22315077 (Version 1)
Quarter: 2023Q2

REPORT INFORMATION
  Report Type: Spontaneous
  Country: US (occurrence: US)
  Receive Date: 20230512
  Receipt Date: 20230512
  Transmission Date: 20230721
  Serious: Yes (Hospitalization)
  Sender: FDA-Public Use
  Company Number: US-JNJFOC-20230519847

PATIENT
  Sex: Female

DRUGS (3)
  1. EVITHROM [Suspect]
     Active Substance: THROMBIN HUMAN
     Indication: Haemostasis
     Route: 061
  2. SURGICEL [Suspect]
     Active Substance: CELLULOSE, OXIDIZED\DEVICE
     Indication: Haemostasis
     Route: 061
  3. SURGICEL [Suspect]
     Active Substance: CELLULOSE, OXIDIZED\DEVICE
     Indication: Haemostasis
     Route: 061

REACTIONS (9)
  - Pelvic abscess [Unknown]
  - Small intestinal obstruction [Unknown]
  - Ileus [Unknown]
  - Pleural effusion [Unknown]
  - Vulval oedema [Unknown]
  - Anaemia postoperative [Unknown]
  - Postoperative wound infection [Unknown]
  - Vaginal cuff dehiscence [Unknown]
  - Post procedural fever [Unknown]
